FAERS Safety Report 10389402 (Version 1)
Quarter: 2014Q3

REPORT INFORMATION
  Report Type: Report from Study
  Country: US (occurrence: US)
  Receive Date: 20140818
  Receipt Date: 20140818
  Transmission Date: 20150326
  Serious: Yes (Other)
  Sender: FDA-Public Use
  Company Number: US-BIOGENIDEC-2014BI080525

PATIENT
  Sex: Male

DRUGS (1)
  1. AVONEX [Suspect]
     Active Substance: INTERFERON BETA-1A
     Indication: MULTIPLE SCLEROSIS
     Route: 030
     Dates: start: 20061113

REACTIONS (8)
  - Renal failure chronic [Not Recovered/Not Resolved]
  - Hypoaesthesia [Recovered/Resolved]
  - Gout [Unknown]
  - Loss of control of legs [Recovered/Resolved]
  - Adverse event [Unknown]
  - Weight bearing difficulty [Unknown]
  - Vision blurred [Recovered/Resolved]
  - Fatigue [Unknown]

NARRATIVE: CASE EVENT DATE: 2006
